FAERS Safety Report 9789960 (Version 1)
Quarter: 2013Q4

REPORT INFORMATION
  Report Type: Spontaneous
  Country: US (occurrence: None)
  Receive Date: 20131230
  Receipt Date: 20131230
  Transmission Date: 20140711
  Serious: Yes (Disabling, Other)
  Sender: FDA-Public Use
  Company Number: None

PATIENT
  Age: 38 Year
  Sex: Female
  Weight: 58.97 kg

DRUGS (1)
  1. PARAGARD [Suspect]

REACTIONS (12)
  - Palpitations [None]
  - Angina pectoris [None]
  - Anxiety [None]
  - Tremor [None]
  - Nervousness [None]
  - Dizziness [None]
  - Visual impairment [None]
  - Tremor [None]
  - Fear [None]
  - Palpitations [None]
  - Palpitations [None]
  - Extrasystoles [None]
